FAERS Safety Report 4608684-X (Version None)
Quarter: 2005Q1

REPORT INFORMATION
  Report Type: 
  Country: None (occurrence: None)
  Receive Date: 20050315
  Receipt Date: 20050309
  Transmission Date: 20050727
  Serious: Yes (Hospitalization)
  Sender: FDA-Public Use
  Company Number: GB-MERCK-0503GBR00096

PATIENT
  Age: 19 Year
  Sex: Male

DRUGS (5)
  1. COZAAR [Suspect]
     Route: 048
  2. CAPTOPRIL [Concomitant]
     Route: 048
  3. ATENOLOL [Concomitant]
     Route: 048
  4. BENDROFLUMETHIAZIDE [Concomitant]
     Route: 048
  5. AMLODIPINE MALEATE [Concomitant]
     Route: 048

REACTIONS (1)
  - NEPHRITIS INTERSTITIAL [None]
